FAERS Safety Report 7214829-8 (Version None)
Quarter: 2011Q1

REPORT INFORMATION
  Report Type: 
  Country: None (occurrence: None)
  Receive Date: 20110107
  Receipt Date: 20100521
  Transmission Date: 20110831
  Serious: No
  Sender: FDA-Public Use
  Company Number: A0850877A

PATIENT
  Age: 62 Year
  Sex: Female

DRUGS (6)
  1. MULTIVITAMIN [Concomitant]
  2. LIPITOR [Concomitant]
  3. LISINOPRIL [Concomitant]
  4. METFORMIN [Concomitant]
  5. HYDROCHLOROTHIAZIDE [Concomitant]
  6. LOVAZA [Suspect]
     Dosage: 1CAP PER DAY
     Route: 048
     Dates: start: 20090401

REACTIONS (2)
  - ERUCTATION [None]
  - PRODUCT QUALITY ISSUE [None]
